FAERS Safety Report 9548297 (Version 1)
Quarter: 2013Q3

REPORT INFORMATION
  Report Type: Spontaneous
  Country: US (occurrence: US)
  Receive Date: 20130924
  Receipt Date: 20130924
  Transmission Date: 20140515
  Serious: Yes (Other)
  Sender: FDA-Public Use
  Company Number: US-PFIZER INC-2013270239

PATIENT
  Age: 26 Year
  Sex: Male

DRUGS (2)
  1. ZYVOX [Suspect]
     Indication: CELLULITIS
     Dosage: 600 MG, UNK
  2. ZYVOX [Suspect]
     Indication: ABSCESS LIMB

REACTIONS (2)
  - Cellulitis [Unknown]
  - Abscess limb [Unknown]
